FAERS Safety Report 8509144-6 (Version None)
Quarter: 2012Q3

REPORT INFORMATION
  Report Type: 
  Country: None (occurrence: None)
  Receive Date: 20120713
  Receipt Date: 20120619
  Transmission Date: 20120928
  Serious: Yes (Hospitalization)
  Sender: FDA-Public Use
  Company Number: JP-GLAXOSMITHKLINE-B0809915A

PATIENT
  Sex: Female

DRUGS (3)
  1. DEPAKENE [Concomitant]
     Indication: EPILEPSY
     Dosage: 600MG PER DAY
     Route: 048
     Dates: start: 20031101
  2. CONCERTA [Suspect]
     Indication: ATTENTION DEFICIT/HYPERACTIVITY DISORDER
     Dosage: 18MG PER DAY
     Route: 048
     Dates: start: 20120401, end: 20120614
  3. LAMICTAL [Suspect]
     Indication: EPILEPSY
     Dosage: 10MG PER DAY
     Route: 048
     Dates: start: 20120401, end: 20120617

REACTIONS (3)
  - PYREXIA [None]
  - LIP EROSION [None]
  - CONJUNCTIVAL HYPERAEMIA [None]
